FAERS Safety Report 8401230-4 (Version None)
Quarter: 2012Q2

REPORT INFORMATION
  Report Type: 
  Country: None (occurrence: None)
  Receive Date: 20120601
  Receipt Date: 20120528
  Transmission Date: 20120825
  Serious: Yes (Hospitalization)
  Sender: FDA-Public Use
  Company Number: PHHY2012BR046247

PATIENT
  Sex: Female
  Weight: 70 kg

DRUGS (1)
  1. TEGRETOL [Suspect]
     Dosage: UNK

REACTIONS (1)
  - ACCIDENTAL EXPOSURE [None]
